FAERS Safety Report 18518066 (Version 7)
Quarter: 2021Q2

REPORT INFORMATION
  Report Type: Spontaneous
  Country: US (occurrence: US)
  Receive Date: 20201118
  Receipt Date: 20210610
  Transmission Date: 20210717
  Serious: No
  Sender: FDA-Public Use
  Company Number: US-PFIZER INC-2020451831

PATIENT
  Age: 74 Year
  Sex: Female

DRUGS (2)
  1. IBRANCE [Suspect]
     Active Substance: PALBOCICLIB
     Dosage: 100 MG
  2. IBRANCE [Suspect]
     Active Substance: PALBOCICLIB
     Indication: BREAST CANCER FEMALE
     Dosage: 100 MG, CYCLIC (100 MG DAILY FOR 21 DAYS ON, 7 DAYS OFF ON A 28 DAY CYCLE)

REACTIONS (8)
  - Oral pain [Unknown]
  - Gait disturbance [Unknown]
  - Rash pruritic [Unknown]
  - Dental caries [Unknown]
  - Back pain [Unknown]
  - Weight increased [Unknown]
  - Rash erythematous [Unknown]
  - Depression [Recovering/Resolving]

NARRATIVE: CASE EVENT DATE: 202011
